FAERS Safety Report 8077786-0 (Version None)
Quarter: 2012Q1

REPORT INFORMATION
  Report Type: 
  Country: None (occurrence: None)
  Receive Date: 20120127
  Receipt Date: 20120114
  Transmission Date: 20120608
  Serious: Yes (Other)
  Sender: FDA-Public Use
  Company Number: CHPA2012US002072

PATIENT
  Age: 29 Year
  Sex: Male

DRUGS (13)
  1. EXCEDRIN EXTRA STRENGTH CAPLETS [Suspect]
     Indication: BACK PAIN
     Dosage: 1-2 DF, Q 7-8 HOURS
     Route: 048
     Dates: end: 20120101
  2. SOMA [Concomitant]
  3. DILANTIN [Concomitant]
  4. LOMOTIL [Concomitant]
  5. PROCHLORPERAZINE [Concomitant]
  6. TRAMADOL HCL [Concomitant]
  7. XANAX [Concomitant]
  8. TOPAMAX [Concomitant]
  9. FIORICET [Concomitant]
  10. KEPPRA [Concomitant]
  11. OXYCONTIN [Concomitant]
  12. CYMBALTA [Concomitant]
  13. PERCOCET [Concomitant]

REACTIONS (6)
  - INFLUENZA LIKE ILLNESS [None]
  - LOSS OF CONSCIOUSNESS [None]
  - SLUGGISHNESS [None]
  - HEADACHE [None]
  - UNDERDOSE [None]
  - FEELING ABNORMAL [None]
